FAERS Safety Report 21001701 (Version 1)
Quarter: 2022Q2

REPORT INFORMATION
  Report Type: Spontaneous
  Country: US (occurrence: US)
  Receive Date: 20220624
  Receipt Date: 20220624
  Transmission Date: 20220721
  Serious: No
  Sender: FDA-Public Use
  Company Number: US-009507513-2205USA008131

PATIENT
  Age: 30 Year
  Sex: Male

DRUGS (4)
  1. PRINIVIL [Suspect]
     Active Substance: LISINOPRIL
     Indication: Oculocerebrorenal syndrome
     Dosage: 2.5 MG A DAY
     Route: 048
  2. DIETARY SUPPLEMENT\UBIDECARENONE [Concomitant]
     Active Substance: DIETARY SUPPLEMENT\UBIDECARENONE
     Indication: Hypotonia
     Dosage: 200 MILLIGRAM, ONCE DAILY
  3. LEVOCARNITINE [Concomitant]
     Active Substance: LEVOCARNITINE
     Indication: Hypotonia
     Dosage: 500 MILLIGRAM, ONCE DAILY
     Route: 048
  4. LEVOCARNITINE [Concomitant]
     Active Substance: LEVOCARNITINE
     Dosage: 500 MILLIGRAM, TWICE A DAY
     Route: 048

REACTIONS (1)
  - Product use in unapproved indication [Unknown]
